FAERS Safety Report 7604301-5 (Version None)
Quarter: 2011Q3

REPORT INFORMATION
  Report Type: 
  Country: None (occurrence: None)
  Receive Date: 20110712
  Receipt Date: 20110630
  Transmission Date: 20111222
  Serious: Yes (Other)
  Sender: FDA-Public Use
  Company Number: PHEH2009US02712

PATIENT
  Sex: Male

DRUGS (17)
  1. LIPITOR [Concomitant]
  2. ASPIRIN [Concomitant]
  3. NORVASC [Concomitant]
  4. REQUIP [Concomitant]
  5. LYRICA [Concomitant]
  6. PREDNISOLONE [Concomitant]
  7. PROCRIT                            /00909301/ [Concomitant]
  8. THALIDOMIDE [Concomitant]
  9. FOLIC ACID [Concomitant]
  10. ZOMETA [Suspect]
     Dosage: 4 MG, MONTHLY
     Dates: start: 20030421
  11. ALKERAN [Concomitant]
  12. REVLIMID [Concomitant]
  13. ATENOLOL [Concomitant]
  14. LASIX [Concomitant]
  15. SOTALOL HCL [Concomitant]
  16. VASOTEC [Concomitant]
  17. TENORMIN [Concomitant]

REACTIONS (26)
  - NEUROPATHY PERIPHERAL [None]
  - MUSCLE SPASMS [None]
  - PAIN [None]
  - INFECTION [None]
  - VISUAL ACUITY REDUCED [None]
  - OSTEOMYELITIS [None]
  - SWELLING FACE [None]
  - CATARACT [None]
  - OEDEMA PERIPHERAL [None]
  - FIBROSIS [None]
  - MACULAR HOLE [None]
  - HYPOAESTHESIA [None]
  - NEPHROLITHIASIS [None]
  - OSTEONECROSIS OF JAW [None]
  - TOOTHACHE [None]
  - FACET JOINT SYNDROME [None]
  - IRITIS [None]
  - INSOMNIA [None]
  - DENTAL CARIES [None]
  - DIABETES MELLITUS [None]
  - RETINITIS [None]
  - RESTLESS LEGS SYNDROME [None]
  - DEFORMITY [None]
  - INTERVERTEBRAL DISC DEGENERATION [None]
  - ATELECTASIS [None]
  - ERYTHEMA [None]
